FAERS Safety Report 13553625 (Version 2)
Quarter: 2017Q2

REPORT INFORMATION
  Report Type: Spontaneous
  Country: ES (occurrence: ES)
  Receive Date: 20170517
  Receipt Date: 20170523
  Transmission Date: 20170830
  Serious: Yes (Death, Hospitalization, Other)
  Sender: FDA-Public Use
  Company Number: ES-009507513-1705ESP006116

PATIENT
  Age: 70 Year
  Sex: Male

DRUGS (6)
  1. AMIODARONA [Concomitant]
     Active Substance: AMIODARONE
     Indication: ARRHYTHMIA
     Dosage: 1EVERY24H
     Route: 048
     Dates: start: 20151228
  2. ALLOPURINOL. [Concomitant]
     Active Substance: ALLOPURINOL
     Indication: HYPERURICAEMIA
     Dosage: 300 MG, Q24H
     Route: 048
     Dates: start: 20170201
  3. TIOTROPIUM BROMIDE [Concomitant]
     Active Substance: TIOTROPIUM BROMIDE
     Indication: RESPIRATORY FAILURE
     Dosage: 1EVERY24H
     Route: 055
     Dates: start: 20160425
  4. KEYTRUDA [Suspect]
     Active Substance: PEMBROLIZUMAB
     Indication: LUNG ADENOCARCINOMA
     Dosage: 2 MG/KG (138MG) EVERY 3 WEEKS (RECEIVE 2 DOSES 27/3 AND 20/4)
     Route: 065
     Dates: start: 20170327, end: 20170426
  5. FENTANYL. [Concomitant]
     Active Substance: FENTANYL
     Indication: PAIN
     Dosage: 1 EVERY 72 HOURS
     Route: 062
     Dates: start: 20170102
  6. ABSTRAL [Concomitant]
     Active Substance: FENTANYL CITRATE
     Indication: PAIN
     Dosage: RESCUE
     Route: 050
     Dates: start: 20170227

REACTIONS (1)
  - Infectious pleural effusion [Fatal]

NARRATIVE: CASE EVENT DATE: 20170424
